FAERS Safety Report 13517819 (Version 1)
Quarter: 2017Q2

REPORT INFORMATION
  Report Type: Spontaneous
  Country: KZ (occurrence: KZ)
  Receive Date: 20170505
  Receipt Date: 20170505
  Transmission Date: 20170830
  Serious: Yes (Hospitalization, Congenital Anomaly, Other)
  Sender: FDA-Public Use
  Company Number: KZ-JNJFOC-20170429555

PATIENT
  Age: 0 Day
  Sex: Male
  Weight: 2.58 kg

DRUGS (1)
  1. TOPAMAX [Suspect]
     Active Substance: TOPIRAMATE
     Indication: PRODUCT USED FOR UNKNOWN INDICATION
     Route: 064

REACTIONS (5)
  - Foetal exposure during pregnancy [Recovered/Resolved]
  - Early infantile epileptic encephalopathy with burst-suppression [Recovering/Resolving]
  - Cerebral ischaemia [Recovering/Resolving]
  - Merycism [Unknown]
  - Small for dates baby [Unknown]

NARRATIVE: CASE EVENT DATE: 20170403
